FAERS Safety Report 4316680-5 (Version None)
Quarter: 2004Q1

REPORT INFORMATION
  Report Type: 
  Country: None (occurrence: None)
  Receive Date: 20040311
  Receipt Date: 20040301
  Transmission Date: 20041129
  Serious: Yes (Death, Hospitalization, Other)
  Sender: FDA-Public Use
  Company Number: 2003-08-2370

PATIENT
  Age: 50 Year
  Sex: Female

DRUGS (8)
  1. INTRON A [Suspect]
     Indication: CHRONIC MYELOID LEUKAEMIA
     Dosage: 10 MIU 3-7D/WK SUBCUTANOUES
     Route: 058
     Dates: start: 19931027, end: 19961230
  2. EFFEXOR [Suspect]
     Indication: DEPRESSION
     Dates: start: 19960401
  3. HYDREA [Suspect]
     Indication: CHRONIC MYELOID LEUKAEMIA
     Dates: start: 19960401, end: 19961001
  4. PREDNISONE [Suspect]
     Dosage: 15 MG, ORAL
     Route: 048
  5. DAUNORUBICIN HCL [Suspect]
     Indication: CHRONIC MYELOID LEUKAEMIA
     Dates: start: 19940401, end: 19940401
  6. CYTOSAR-U [Suspect]
     Indication: CHRONIC MYELOID LEUKAEMIA
     Dates: start: 19940401, end: 19950201
  7. ETHANOLAMINE [Suspect]
     Indication: CHRONIC MYELOID LEUKAEMIA
     Dates: start: 19940901, end: 19940901
  8. AMEKRIN [Suspect]
     Indication: CHRONIC MYELOID LEUKAEMIA
     Dates: start: 19950201, end: 19950201

REACTIONS (19)
  - AUTOIMMUNE DISORDER [None]
  - BLINDNESS TRANSIENT [None]
  - CARDIAC FAILURE [None]
  - CARDIOMEGALY [None]
  - COUGH [None]
  - DEPRESSION [None]
  - DIALYSIS [None]
  - DYSPNOEA [None]
  - MICROANGIOPATHY [None]
  - NAUSEA [None]
  - OPEN WOUND [None]
  - PNEUMONITIS [None]
  - PULMONARY ARTERIAL PRESSURE INCREASED [None]
  - RENAL FAILURE CHRONIC [None]
  - SEPSIS [None]
  - SPIROMETRY ABNORMAL [None]
  - VASCULITIS [None]
  - VISUAL FIELD DEFECT [None]
  - WEIGHT DECREASED [None]
